FAERS Safety Report 6379739-7 (Version None)
Quarter: 2009Q3

REPORT INFORMATION
  Report Type: 
  Country: None (occurrence: None)
  Receive Date: 20090924
  Receipt Date: 20090924
  Transmission Date: 20100115
  Serious: Yes (Hospitalization)
  Sender: FDA-Public Use
  Company Number: None

PATIENT
  Age: 75 Year
  Sex: Male
  Weight: 82 kg

DRUGS (1)
  1. LISINOPRIL [Suspect]
     Dosage: 20MG EVERY DAY PO
     Route: 048
     Dates: start: 20090319, end: 20090923

REACTIONS (6)
  - COUGH [None]
  - LIP SWELLING [None]
  - OEDEMA MOUTH [None]
  - PRURITUS [None]
  - URTICARIA [None]
  - WHEEZING [None]
